FAERS Safety Report 18361790 (Version 1)
Quarter: 2020Q4

REPORT INFORMATION
  Report Type: Other
  Country: US (occurrence: US)
  Receive Date: 20201008
  Receipt Date: 20201008
  Transmission Date: 20210114
  Serious: Yes (Death, Life-Threatening, Hospitalization)
  Sender: FDA-Public Use
  Company Number: US-NOSTRUM LABORATORIES, INC.-2092558

PATIENT
  Age: 49 Year
  Sex: Male

DRUGS (1)
  1. METFORMIN HYDROCHLORIDE EXTENDED-RELEASE [Suspect]
     Active Substance: METFORMIN HYDROCHLORIDE
     Indication: TYPE 2 DIABETES MELLITUS
     Route: 048

REACTIONS (5)
  - Hypovolaemic shock [Fatal]
  - Acute kidney injury [Fatal]
  - Cardiac failure congestive [Fatal]
  - Lactic acidosis [Fatal]
  - Acute respiratory failure [Fatal]
